FAERS Safety Report 22092498 (Version 1)
Quarter: 2023Q1

REPORT INFORMATION
  Report Type: Spontaneous
  Country: US (occurrence: None)
  Receive Date: 20230313
  Receipt Date: 20230313
  Transmission Date: 20230417
  Serious: No
  Sender: FDA-Public Use
  Company Number: None

PATIENT
  Age: 84 Year
  Sex: Male

DRUGS (1)
  1. CAPECITABINE [Suspect]
     Active Substance: CAPECITABINE
     Indication: Colorectal cancer
     Dosage: OTHER QUANTITY : 3 QAM - 2QPM;?OTHER FREQUENCY : DAILY 14 DAYS;?
     Route: 048
     Dates: start: 20230202, end: 20230308

REACTIONS (2)
  - Stomatitis [None]
  - Peripheral swelling [None]

NARRATIVE: CASE EVENT DATE: 20230301
